FAERS Safety Report 13544610 (Version 1)
Quarter: 2017Q2

REPORT INFORMATION
  Report Type: Spontaneous
  Country: US (occurrence: US)
  Receive Date: 20170512
  Receipt Date: 20170512
  Transmission Date: 20170830
  Serious: No
  Sender: FDA-Public Use
  Company Number: None

PATIENT
  Age: 75 Year
  Sex: Female

DRUGS (1)
  1. GLEEVEC [Suspect]
     Active Substance: IMATINIB MESYLATE
     Indication: LEUKAEMIA
     Route: 048
     Dates: start: 2009

REACTIONS (5)
  - Influenza like illness [None]
  - Insomnia [None]
  - Chills [None]
  - Diarrhoea [None]
  - Swelling [None]

NARRATIVE: CASE EVENT DATE: 20170511
